FAERS Safety Report 4413952-0 (Version None)
Quarter: 2004Q4

REPORT INFORMATION
  Report Type: 
  Country: None (occurrence: None)
  Receive Date: 20040729
  Receipt Date: 20040719
  Transmission Date: 20050328
  Serious: Yes (Hospitalization, Other)
  Sender: FDA-Public Use
  Company Number: HQWYE258320JUL04

PATIENT
  Age: 31 Year
  Sex: Male

DRUGS (8)
  1. PROPRANOLOL HYDROCHLORIDE [Suspect]
     Indication: SUICIDE ATTEMPT
     Route: 048
     Dates: start: 20030920, end: 20030920
  2. ALCOHOL (ETHANOL, ) [Suspect]
     Indication: SUICIDE ATTEMPT
     Dates: start: 20030920, end: 20030920
  3. COCAINE (COCAINE, ) [Suspect]
     Indication: SUICIDE ATTEMPT
     Dates: start: 20030920, end: 20030920
  4. PROPOFAN (CAFFEINE/CARBASALATE CALCIUM/CHLORPHENAMINE MALEATE/DEXTROPR [Suspect]
     Indication: SUICIDE ATTEMPT
     Dosage: 40 TABLETS
     Route: 048
     Dates: start: 20030920, end: 20030920
  5. ZITHROMAX [Suspect]
     Indication: SUICIDE ATTEMPT
     Route: 048
     Dates: start: 20030920, end: 20030920
  6. ZIAGEN [Concomitant]
  7. VIDEX [Concomitant]
  8. KALETRA [Concomitant]

REACTIONS (6)
  - COAGULATION FACTOR V LEVEL DECREASED [None]
  - HEPATIC FAILURE [None]
  - INTENTIONAL OVERDOSE [None]
  - PROTHROMBIN TIME PROLONGED [None]
  - RENAL FAILURE ACUTE [None]
  - SUICIDE ATTEMPT [None]
